FAERS Safety Report 4853332-7 (Version None)
Quarter: 2005Q4

REPORT INFORMATION
  Report Type: 
  Country: None (occurrence: None)
  Receive Date: 20051214
  Receipt Date: 20051209
  Transmission Date: 20060501
  Serious: Yes (Hospitalization)
  Sender: FDA-Public Use
  Company Number: FR-GLAXOSMITHKLINE-B0403449A

PATIENT
  Age: 20 Year
  Sex: Female

DRUGS (2)
  1. NARAMIG [Suspect]
     Indication: MIGRAINE
     Route: 048
  2. ORAL CONTRACEPTIVE UNKNOWN DRUG NAME [Concomitant]
     Route: 048

REACTIONS (4)
  - BACK PAIN [None]
  - CHEST PAIN [None]
  - PAIN [None]
  - PULMONARY EMBOLISM [None]
